FAERS Safety Report 24575300 (Version 3)
Quarter: 2024Q4

REPORT INFORMATION
  Report Type: Report from Study
  Country: CA (occurrence: CA)
  Receive Date: 20241104
  Receipt Date: 20241221
  Transmission Date: 20250114
  Serious: No
  Sender: TAKEDA
  Company Number: CA-SHIRE-CA202019824

PATIENT
  Age: 36 Year
  Sex: Female
  Weight: 88 kg

DRUGS (4)
  1. HUMAN IMMUNOGLOBULIN G [Suspect]
     Active Substance: HUMAN IMMUNOGLOBULIN G
     Indication: Primary immunodeficiency syndrome
     Dosage: 14 GRAM, 1/WEEK
     Dates: start: 20180707
  2. HUMAN IMMUNOGLOBULIN G [Suspect]
     Active Substance: HUMAN IMMUNOGLOBULIN G
     Indication: Immunodeficiency common variable
     Dosage: 10 GRAM, 1/WEEK
  3. HUMAN IMMUNOGLOBULIN G [Suspect]
     Active Substance: HUMAN IMMUNOGLOBULIN G
     Dosage: 12 GRAM, 1/WEEK
  4. HUMAN IMMUNOGLOBULIN G [Suspect]
     Active Substance: HUMAN IMMUNOGLOBULIN G
     Dosage: 12 GRAM, 1/WEEK

REACTIONS (12)
  - Weight increased [Unknown]
  - Blood immunoglobulin G decreased [Unknown]
  - COVID-19 [Recovering/Resolving]
  - Wrong device used [Unknown]
  - Scar [Not Recovered/Not Resolved]
  - Needle issue [Unknown]
  - Influenza [Not Recovered/Not Resolved]
  - Infusion site discomfort [Unknown]
  - Injection site pain [Unknown]
  - Influenza like illness [Unknown]
  - Malaise [Unknown]
  - Fatigue [Unknown]

NARRATIVE: CASE EVENT DATE: 20200601
